FAERS Safety Report 9795650 (Version 1)
Quarter: 2014Q1

REPORT INFORMATION
  Report Type: Spontaneous
  Country: US (occurrence: US)
  Receive Date: 20140103
  Receipt Date: 20140103
  Transmission Date: 20141002
  Serious: No
  Sender: FDA-Public Use
  Company Number: US-PFIZER INC-2014001147

PATIENT
  Sex: Male

DRUGS (1)
  1. LYRICA [Suspect]
     Dosage: 75 MG, 2X/DAY (ONE AT 7AM AND ONE AT 7PM)
     Dates: start: 2011

REACTIONS (1)
  - Nasopharyngitis [Not Recovered/Not Resolved]
